FAERS Safety Report 9008767 (Version 1)
Quarter: 2013Q1

REPORT INFORMATION
  Report Type: Report from Study
  Country: US (occurrence: US)
  Receive Date: 20130111
  Receipt Date: 20130111
  Transmission Date: 20140127
  Serious: Yes (Other)
  Sender: FDA-Public Use
  Company Number: US-ABBOTT-13P-163-1031643-00

PATIENT
  Age: 53 Year
  Sex: Male

DRUGS (2)
  1. HUMIRA [Suspect]
     Indication: RHEUMATOID ARTHRITIS
  2. VICODIN [Concomitant]
     Indication: PAIN

REACTIONS (7)
  - Meniscus injury [Recovering/Resolving]
  - Ligament rupture [Unknown]
  - Meniscus injury [Unknown]
  - Blood cholesterol increased [Unknown]
  - Lower respiratory tract infection [Unknown]
  - Erythema [Unknown]
  - Productive cough [Unknown]
